FAERS Safety Report 6551495-9 (Version None)
Quarter: 2010Q1

REPORT INFORMATION
  Report Type: 
  Country: None (occurrence: None)
  Receive Date: 20100122
  Receipt Date: 20091005
  Transmission Date: 20100710
  Serious: Yes (Life-Threatening)
  Sender: FDA-Public Use
  Company Number: WAES 0910USA00577

PATIENT
  Age: 37 Year
  Sex: Female

DRUGS (1)
  1. INVANZ [Suspect]
     Indication: APPENDICECTOMY
     Dates: start: 20091003, end: 20091004

REACTIONS (1)
  - PAIN [None]
